FAERS Safety Report 7805133-5 (Version None)
Quarter: 2011Q4

REPORT INFORMATION
  Report Type: 
  Country: None (occurrence: None)
  Receive Date: 20111010
  Receipt Date: 20110930
  Transmission Date: 20120403
  Serious: Yes (Other)
  Sender: FDA-Public Use
  Company Number: PHHY2011AU86663

PATIENT
  Sex: Male

DRUGS (2)
  1. CLOZAPINE [Suspect]
     Dosage: 12.5 MG, UNK
     Dates: start: 20110901
  2. CLOZAPINE [Suspect]
     Dosage: 350 MG, UNK

REACTIONS (5)
  - PHAEOCHROMOCYTOMA [None]
  - BLOOD CREATINE PHOSPHOKINASE INCREASED [None]
  - HYPERTENSION [None]
  - NOREPINEPHRINE INCREASED [None]
  - GLUCOSE TOLERANCE IMPAIRED [None]
